FAERS Safety Report 7001469-9 (Version None)
Quarter: 2010Q3

REPORT INFORMATION
  Report Type: 
  Country: None (occurrence: None)
  Receive Date: 20100920
  Receipt Date: 20100518
  Transmission Date: 20110219
  Serious: Yes (Other)
  Sender: FDA-Public Use
  Company Number: US-ASTRAZENECA-2010SE22867

PATIENT
  Sex: Female
  Weight: 83.9 kg

DRUGS (11)
  1. SEROQUEL [Suspect]
     Indication: SCHIZOAFFECTIVE DISORDER BIPOLAR TYPE
     Route: 048
     Dates: start: 20080101
  2. DOXYCYCLINE [Concomitant]
  3. MINOCYCLINE HCL [Concomitant]
  4. LEVOTHYROXINE [Concomitant]
  5. RITADINE [Concomitant]
  6. TEGRETOL [Concomitant]
     Indication: CONVULSION
  7. GABAPENTIN [Concomitant]
  8. EXFORGE [Concomitant]
  9. HYDROCHLOROTHIAZIDE [Concomitant]
  10. CARBAMAZEPINE [Concomitant]
  11. SIMVASTATIN [Concomitant]

REACTIONS (10)
  - BALANCE DISORDER [None]
  - BLOOD CHOLESTEROL INCREASED [None]
  - CONVULSION [None]
  - EPISTAXIS [None]
  - HYPERTENSION [None]
  - INCONTINENCE [None]
  - INJURY [None]
  - MUSCLE TWITCHING [None]
  - NAUSEA [None]
  - SUICIDE ATTEMPT [None]
